FAERS Safety Report 7061580-3 (Version None)
Quarter: 2010Q4

REPORT INFORMATION
  Report Type: 
  Country: None (occurrence: None)
  Receive Date: 20101026
  Receipt Date: 20101012
  Transmission Date: 20110411
  Serious: No
  Sender: FDA-Public Use
  Company Number: US-JNJFOC-20101003501

PATIENT
  Sex: Male
  Weight: 122.47 kg

DRUGS (1)
  1. INVEGA SUSTENNA [Suspect]
     Indication: PSYCHOTIC DISORDER
     Route: 030

REACTIONS (5)
  - EJACULATION FAILURE [None]
  - ERECTILE DYSFUNCTION [None]
  - INCREASED APPETITE [None]
  - PARANOIA [None]
  - WEIGHT INCREASED [None]
